FAERS Safety Report 9508130 (Version 1)
Quarter: 2013Q1

REPORT INFORMATION
  Report Type: Spontaneous
  Country: US (occurrence: None)
  Receive Date: 20130305
  Receipt Date: 20130305
  Transmission Date: 20140127
  Serious: Yes (Hospitalization, Other)
  Sender: FDA-Public Use
  Company Number: 163-21880-11103450

PATIENT
  Age: 69 Year
  Sex: Male

DRUGS (15)
  1. REVLIMID (LENALIDOMIDE) (25 MILLIGRAM, CAPSULES) [Suspect]
     Indication: PLASMA CELL MYELOMA
     Dosage: CAPSULE, 25 MG, DAILY X 21D / 28D, PO
     Dates: start: 20080712, end: 201001
  2. DECADRON (DEXAMETHASONE) [Concomitant]
  3. ZOMETA (ZOLEDRONIC ACID) [Concomitant]
  4. VELCADE (BORTEZOMIB) [Concomitant]
  5. DIGOXIN [Concomitant]
  6. GABAPENTIN [Concomitant]
  7. LANOXIN (DIGOXIN) [Concomitant]
  8. LEVETIRACETAM [Concomitant]
  9. MULTIVITAMIN [Concomitant]
  10. OMEPRAZOLE [Concomitant]
  11. OSCAL (CALCIUM CARBONATE) [Concomitant]
  12. POTASSIUM [Concomitant]
  13. SYNTHROID (LEVOTHYROXINE SODIUM) [Concomitant]
  14. COUMADIN (WARFARIN SODIUM) [Concomitant]
  15. NEURONTIN (GABAPENTIN) [Concomitant]

REACTIONS (1)
  - Platelet count decreased [None]
